FAERS Safety Report 15976054 (Version 1)
Quarter: 2019Q1

REPORT INFORMATION
  Report Type: Spontaneous
  Country: US (occurrence: US)
  Receive Date: 20190218
  Receipt Date: 20190218
  Transmission Date: 20190418
  Serious: No
  Sender: FDA-Public Use
  Company Number: US-MYLANLABS-2019M1008958

PATIENT
  Sex: Female
  Weight: 79 kg

DRUGS (2)
  1. VERAPAMIL HYDROCHLORIDE EXTENDED-RELEASE CAPSULES, USP [Suspect]
     Active Substance: VERAPAMIL HYDROCHLORIDE
     Indication: HEADACHE
     Dosage: 120 MILLIGRAM, BID
     Route: 048
  2. VERAPAMIL HYDROCHLORIDE EXTENDED-RELEASE CAPSULES, USP [Suspect]
     Active Substance: VERAPAMIL HYDROCHLORIDE
     Indication: HEMIPLEGIC MIGRAINE

REACTIONS (4)
  - Fatigue [Unknown]
  - Product use in unapproved indication [Unknown]
  - Product availability issue [Unknown]
  - Headache [Unknown]
